FAERS Safety Report 16467255 (Version 1)
Quarter: 2019Q2

REPORT INFORMATION
  Report Type: Report from Study
  Country: US (occurrence: US)
  Receive Date: 20190624
  Receipt Date: 20190624
  Transmission Date: 20190711
  Serious: Yes (Other)
  Sender: FDA-Public Use
  Company Number: US-EMD SERONO-9099125

PATIENT
  Sex: Female

DRUGS (1)
  1. REBIF [Suspect]
     Active Substance: INTERFERON BETA-1A
     Indication: PRODUCT USED FOR UNKNOWN INDICATION
     Route: 058
     Dates: start: 20071207

REACTIONS (10)
  - Spinal disorder [Unknown]
  - Gait disturbance [Unknown]
  - Pain in extremity [Unknown]
  - Reading disorder [Unknown]
  - Balance disorder [Unknown]
  - Drug ineffective [Unknown]
  - Haemorrhage [Unknown]
  - Hypertension [Unknown]
  - Headache [Recovering/Resolving]
  - Thyroid disorder [Unknown]
